FAERS Safety Report 6681603-0 (Version None)
Quarter: 2010Q2

REPORT INFORMATION
  Report Type: 
  Country: None (occurrence: None)
  Receive Date: 20100413
  Receipt Date: 20100413
  Transmission Date: 20101027
  Serious: Yes (Other)
  Sender: FDA-Public Use
  Company Number: None

PATIENT
  Age: 50 Year
  Sex: Female
  Weight: 99.7913 kg

DRUGS (1)
  1. BUPROPION 300 MGS DO NOT KNOW [Suspect]
     Indication: DEPRESSION
     Dosage: 2 TABLETS DAILY PO
     Route: 048
     Dates: start: 20100220, end: 20100404

REACTIONS (3)
  - AMNESIA [None]
  - LOSS OF CONSCIOUSNESS [None]
  - RESPIRATORY ARREST [None]
